FAERS Safety Report 9978106 (Version 1)
Quarter: 2014Q1

REPORT INFORMATION
  Report Type: Report from Study
  Country: US (occurrence: US)
  Receive Date: 20140306
  Receipt Date: 20140306
  Transmission Date: 20141002
  Serious: No
  Sender: FDA-Public Use
  Company Number: US-ABBVIE-13P-163-1162032-00

PATIENT
  Age: 48 Year
  Sex: Female

DRUGS (5)
  1. HUMIRA [Suspect]
     Indication: CROHN^S DISEASE
     Dates: start: 20130709
  2. ZANTAC [Concomitant]
     Indication: DYSPEPSIA
  3. ENTOCORT [Concomitant]
     Indication: PROPHYLAXIS
  4. PENTASA [Concomitant]
     Indication: INFLAMMATION
  5. POTASSIUM [Concomitant]
     Indication: PRODUCT USED FOR UNKNOWN INDICATION

REACTIONS (2)
  - Injection site bruising [Recovering/Resolving]
  - Injection site rash [Recovering/Resolving]
